FAERS Safety Report 10248764 (Version 1)
Quarter: 2014Q2

REPORT INFORMATION
  Report Type: Spontaneous
  Country: US (occurrence: None)
  Receive Date: 20140618
  Receipt Date: 20140618
  Transmission Date: 20141212
  Serious: Yes (Other)
  Sender: FDA-Public Use
  Company Number: None

PATIENT
  Age: 59 Year
  Sex: Male
  Weight: 62.6 kg

DRUGS (2)
  1. CEFUROXIME [Suspect]
     Indication: CYSTITIS
     Dosage: 5/20, 5/21, 5/22.,BID.
  2. CEFUROXIME [Suspect]
     Dosage: 5/20, 5/21, 5/22.,BID.

REACTIONS (5)
  - Pain [None]
  - Eye irritation [None]
  - Nasal discomfort [None]
  - Lung disorder [None]
  - Retinal vascular disorder [None]
